FAERS Safety Report 20256280 (Version 2)
Quarter: 2022Q1

REPORT INFORMATION
  Report Type: Spontaneous
  Country: FR (occurrence: FR)
  Receive Date: 20211230
  Receipt Date: 20220103
  Transmission Date: 20220423
  Serious: Yes (Death)
  Sender: FDA-Public Use
  Company Number: FR-AFSSAPS-AM20213178

PATIENT
  Age: 64 Year
  Sex: Female
  Weight: 98.6 kg

DRUGS (14)
  1. FOLIC ACID [Suspect]
     Active Substance: FOLIC ACID
     Indication: Vitamin supplementation
     Dosage: 5 MILLIGRAM, QD
     Route: 048
     Dates: start: 20210831, end: 20210927
  2. PANTOPRAZOLE [Suspect]
     Active Substance: PANTOPRAZOLE
     Indication: Gastric ulcer
     Dosage: 80 MILLIGRAM, QD
     Route: 048
     Dates: start: 20210829, end: 20210922
  3. CIPROFLOXACIN [Suspect]
     Active Substance: CIPROFLOXACIN
     Indication: Urinary tract infection
     Dosage: 800 MILLIGRAM, QD (400MG 2/J)
     Route: 065
     Dates: start: 20210902, end: 20210905
  4. NOREPINEPHRINE [Suspect]
     Active Substance: NOREPINEPHRINE
     Indication: Shock
     Dosage: 0.4 MILLIGRAM, QH
     Route: 042
     Dates: start: 20210830, end: 20210916
  5. ECONAZOLE [Suspect]
     Active Substance: ECONAZOLE
     Indication: Dermatophytosis
     Dosage: 2 DOSAGE FORM, QD (1%, EMULSION FOR SKIN APPLICATION)
     Route: 003
     Dates: start: 20210827, end: 20210906
  6. AMOXICILLIN\CLAVULANIC ACID [Suspect]
     Active Substance: AMOXICILLIN\CLAVULANIC ACID
     Indication: Vitamin supplementation
     Dosage: 3 DOSAGE FORM, QD (1DF 3/J)
     Route: 042
     Dates: start: 20210827, end: 20210903
  7. VALIUM [Suspect]
     Active Substance: DIAZEPAM
     Indication: Delirium tremens
     Dosage: 1 DOSAGE FORM, QD
     Route: 048
     Dates: start: 20210826, end: 20210901
  8. ACETAMINOPHEN [Suspect]
     Active Substance: ACETAMINOPHEN
     Indication: Pain
     Dosage: 3 GRAM, QD (1G 3/J)
     Route: 042
     Dates: start: 20210903, end: 20210919
  9. CEFTRIAXONE [Suspect]
     Active Substance: CEFTRIAXONE
     Indication: Urinary tract infection
     Dosage: 1 GRAM, QD
     Route: 042
     Dates: start: 20210902, end: 20210905
  10. KARDEGIC [Suspect]
     Active Substance: ASPIRIN DL-LYSINE
     Indication: Peripheral arterial occlusive disease
     Dosage: 75 MILLIGRAM, QD
     Route: 042
     Dates: start: 20210831, end: 20210922
  11. OCTREOTIDE [Suspect]
     Active Substance: OCTREOTIDE
     Indication: Product used for unknown indication
     Dosage: 600 MILLIGRAM, QD
     Route: 042
     Dates: start: 20210830, end: 20210903
  12. ESIDREX [Suspect]
     Active Substance: HYDROCHLOROTHIAZIDE
     Indication: Product used for unknown indication
     Dosage: 12.5 MILLIGRAM, QD
     Route: 048
     Dates: start: 20210827, end: 20210901
  13. POTASSIUM [Suspect]
     Active Substance: POTASSIUM
     Indication: Hypokalaemia
     Dosage: 6 DOSAGE FORM, QD (6 C.A.S /J)
     Route: 048
     Dates: start: 20210902, end: 20210905
  14. CYANOCOBALAMIN\PYRIDOXINE HYDROCHLORIDE\THIAMINE [Suspect]
     Active Substance: CYANOCOBALAMIN\PYRIDOXINE HYDROCHLORIDE\THIAMINE
     Dosage: 4 DOSAGE FORM
     Route: 048
     Dates: start: 20210827, end: 20210915

REACTIONS (1)
  - Acute generalised exanthematous pustulosis [Fatal]

NARRATIVE: CASE EVENT DATE: 20210904
